FAERS Safety Report 22610485 (Version 4)
Quarter: 2024Q4

REPORT INFORMATION
  Report Type: Spontaneous
  Country: GB (occurrence: IN)
  Receive Date: 20230616
  Receipt Date: 20241010
  Transmission Date: 20250115
  Serious: Yes (Death, Hospitalization, Other)
  Sender: VERTEX
  Company Number: GB-VERTEX PHARMACEUTICALS-2023-008366

PATIENT
  Sex: Female
  Weight: 32 kg

DRUGS (10)
  1. ELEXACAFTOR\IVACAFTOR\TEZACAFTOR [Suspect]
     Active Substance: ELEXACAFTOR\IVACAFTOR\TEZACAFTOR
     Indication: Cystic fibrosis
     Dosage: 2 TAB (75 MG IVA/ 50 MG TEZA/100 MG ELEXA) IN THE MORNING
     Route: 048
     Dates: start: 20220203, end: 20230224
  2. KALYDECO [Suspect]
     Active Substance: IVACAFTOR
     Indication: Cystic fibrosis
     Dosage: AT NIGHT
     Route: 048
     Dates: start: 20220203, end: 20230224
  3. COLISTIN [Concomitant]
     Active Substance: COLISTIN
     Indication: Cystic fibrosis
     Dosage: UNK
     Dates: start: 20220907
  4. CREON [Concomitant]
     Active Substance: PANCRELIPASE AMYLASE\PANCRELIPASE LIPASE\PANCRELIPASE PROTEASE
  5. PULMOZYME [Concomitant]
     Active Substance: DORNASE ALFA
  6. POLYETHYLENE GLYCOL 3350\POTASSIUM CHLORIDE\SODIUM BICARBONATE\SODIUM [Concomitant]
     Active Substance: POLYETHYLENE GLYCOL 3350\POTASSIUM CHLORIDE\SODIUM BICARBONATE\SODIUM CHLORIDE
  7. SYMBICORT [Concomitant]
     Active Substance: BUDESONIDE\FORMOTEROL FUMARATE DIHYDRATE
  8. AZITHROMYCIN [Concomitant]
     Active Substance: AZITHROMYCIN
     Indication: Cystic fibrosis
     Dosage: UNK
     Dates: start: 20220907
  9. NOVORAPID [Concomitant]
     Active Substance: INSULIN ASPART
  10. TRESIBA [Concomitant]
     Active Substance: INSULIN DEGLUDEC

REACTIONS (14)
  - Rash [Unknown]
  - Hepatitis [Fatal]
  - Hepatic failure [Fatal]
  - Pyrexia [Unknown]
  - Hypotension [Recovered/Resolved]
  - Vomiting [Unknown]
  - Encephalopathy [Unknown]
  - Acute kidney injury [Unknown]
  - Sepsis [Unknown]
  - COVID-19 [Unknown]
  - Pulmonary function test decreased [Unknown]
  - Underweight [Unknown]
  - Hepatic vein stenosis [Unknown]
  - Coagulopathy [Unknown]

NARRATIVE: CASE EVENT DATE: 20230101
